FAERS Safety Report 7959250-X (Version None)
Quarter: 2011Q4

REPORT INFORMATION
  Report Type: 
  Country: None (occurrence: None)
  Receive Date: 20111206
  Receipt Date: 20111201
  Transmission Date: 20120403
  Serious: Yes (Hospitalization, Other)
  Sender: FDA-Public Use
  Company Number: FR-PFIZER INC-2011293299

PATIENT
  Age: 38 Year
  Sex: Female

DRUGS (9)
  1. CLONAZEPAM [Concomitant]
     Dosage: 5-5-7 DROPS ON MORNING, LUNCH AND EVENING RESPECTIVELY
  2. LYRICA [Suspect]
     Indication: NEURALGIA
     Dosage: UNKNOWN
     Dates: end: 20110521
  3. COPAXONE [Suspect]
     Indication: MULTIPLE SCLEROSIS
     Dosage: UNK
     Dates: start: 20110412
  4. LITHIUM CARBONATE [Concomitant]
     Dosage: 400 MG, 2X/DAY
  5. NEBIVOLOL HYDROCHLORIDE [Concomitant]
     Dosage: 2.5 MG, 1X/DAY
  6. VENTOLIN [Concomitant]
     Dosage: UNKNOWN
  7. ZOLPIDEM [Concomitant]
     Dosage: UNKNOWN
  8. OMEPRAZOLE [Concomitant]
     Dosage: UNKNOWN
  9. LYRICA [Suspect]
     Dosage: 100 MG, 2X/DAY
     Dates: start: 20110522, end: 20110523

REACTIONS (6)
  - ERYTHEMA [None]
  - ANAPHYLACTOID REACTION [None]
  - DYSPHEMIA [None]
  - ASTHMATIC CRISIS [None]
  - PRURITUS [None]
  - INJECTION SITE INDURATION [None]
